FAERS Safety Report 25510656 (Version 1)
Quarter: 2025Q3

REPORT INFORMATION
  Report Type: Spontaneous
  Country: US (occurrence: US)
  Receive Date: 20250703
  Receipt Date: 20250703
  Transmission Date: 20251021
  Serious: Yes (Other)
  Sender: TEVA
  Company Number: US-TEVA-VS-3345970

PATIENT
  Sex: Male

DRUGS (3)
  1. ALBUTEROL [Suspect]
     Active Substance: ALBUTEROL
     Indication: Chest pain
     Route: 065
     Dates: start: 20250624, end: 20250625
  2. ALBUTEROL [Suspect]
     Active Substance: ALBUTEROL
     Indication: Pulmonary pain
     Route: 065
  3. ALBUTEROL [Suspect]
     Active Substance: ALBUTEROL
     Indication: Lung disorder

REACTIONS (5)
  - Near death experience [Unknown]
  - Axillary pain [Unknown]
  - Back pain [Not Recovered/Not Resolved]
  - Expired product administered [Unknown]
  - Chest pain [Not Recovered/Not Resolved]

NARRATIVE: CASE EVENT DATE: 20250601
